FAERS Safety Report 5515089-6 (Version None)
Quarter: 2007Q4

REPORT INFORMATION
  Report Type: 
  Country: None (occurrence: None)
  Receive Date: 20071113
  Receipt Date: 20070130
  Transmission Date: 20080405
  Serious: No
  Sender: FDA-Public Use
  Company Number: A0632599A

PATIENT
  Age: 73 Year
  Sex: Male

DRUGS (5)
  1. CARVEDILOL [Suspect]
     Indication: DRUG USE FOR UNKNOWN INDICATION
     Dosage: 12.5MG TWICE PER DAY
     Route: 048
  2. PLAVIX [Concomitant]
  3. ISOSORBIDE MONONITRATE [Concomitant]
  4. ASPIRIN [Concomitant]
  5. UNKNOWN MEDICATION [Concomitant]

REACTIONS (4)
  - BRONCHITIS [None]
  - DIZZINESS [None]
  - HYPOTENSION [None]
  - ORTHOSTATIC HYPOTENSION [None]
